FAERS Safety Report 14583839 (Version 5)
Quarter: 2018Q4

REPORT INFORMATION
  Report Type: Report from Study
  Country: CA (occurrence: CA)
  Receive Date: 20180228
  Receipt Date: 20181107
  Transmission Date: 20190204
  Serious: Yes (Hospitalization, Other)
  Sender: FDA-Public Use
  Company Number: PHHY2014CA022004

PATIENT
  Age: 54 Year
  Sex: Male
  Weight: 170 kg

DRUGS (3)
  1. SPRYCEL [Suspect]
     Active Substance: DASATINIB
     Indication: PRODUCT USED FOR UNKNOWN INDICATION
     Route: 065
  2. TASIGNA [Suspect]
     Active Substance: NILOTINIB
     Dosage: 300 MG, BID
     Route: 048
     Dates: start: 20180123
  3. TASIGNA [Suspect]
     Active Substance: NILOTINIB
     Indication: CHRONIC MYELOID LEUKAEMIA
     Dosage: 400 MG, BID
     Route: 048
     Dates: start: 20140117, end: 2015

REACTIONS (35)
  - Gait disturbance [Unknown]
  - Pruritus [Recovering/Resolving]
  - Malaise [Unknown]
  - Decreased appetite [Unknown]
  - Pulmonary hypertension [Recovering/Resolving]
  - Hypertension [Unknown]
  - Dyspnoea [Unknown]
  - Ascites [Unknown]
  - Pericarditis [Unknown]
  - Pancreatic disorder [Unknown]
  - Asthenia [Unknown]
  - Influenza [Unknown]
  - Blood cholesterol increased [Unknown]
  - Ear pain [Unknown]
  - Swelling face [Unknown]
  - Inappropriate schedule of product administration [Unknown]
  - Diabetes mellitus [Recovering/Resolving]
  - Hot flush [Unknown]
  - Biopsy bone marrow abnormal [Recovering/Resolving]
  - Ear disorder [Unknown]
  - Acne [Unknown]
  - Oxygen saturation decreased [Unknown]
  - White blood cell count abnormal [Unknown]
  - Blood glucose increased [Unknown]
  - Pleural effusion [Recovered/Resolved]
  - Back pain [Unknown]
  - Stress [Unknown]
  - Erythema [Unknown]
  - Blood cholesterol decreased [Unknown]
  - Drug ineffective [Unknown]
  - Pulmonary embolism [Unknown]
  - Pericardial effusion [Recovered/Resolved]
  - Nausea [Recovered/Resolved]
  - Fatigue [Recovering/Resolving]
  - Cough [Unknown]

NARRATIVE: CASE EVENT DATE: 201401
